FAERS Safety Report 5062041-3 (Version None)
Quarter: 2006Q3

REPORT INFORMATION
  Report Type: 
  Country: None (occurrence: None)
  Receive Date: 20060726
  Receipt Date: 20060717
  Transmission Date: 20061208
  Serious: Yes (Other)
  Sender: FDA-Public Use
  Company Number: PHEH2006US09125

PATIENT
  Age: 61 Year
  Sex: Male

DRUGS (2)
  1. ZOMETA [Suspect]
     Indication: MULTIPLE MYELOMA
     Dosage: UNK Q4WK
  2. AREDIA [Suspect]

REACTIONS (2)
  - MASTICATION DISORDER [None]
  - OSTEONECROSIS [None]
